FAERS Safety Report 24025945 (Version 3)
Quarter: 2024Q3

REPORT INFORMATION
  Report Type: Report from Study
  Country: CO (occurrence: CO)
  Receive Date: 20240628
  Receipt Date: 20240710
  Transmission Date: 20241017
  Serious: No
  Sender: ROCHE
  Company Number: CO-ROCHE-3212587

PATIENT
  Age: 65 Year
  Sex: Male
  Weight: 92.8 kg

DRUGS (3)
  1. ALECTINIB [Suspect]
     Active Substance: ALECTINIB
     Indication: Lung cancer metastatic
     Route: 048
     Dates: start: 20220530
  2. LOSARTAN [Concomitant]
     Active Substance: LOSARTAN
     Indication: Hypertension
     Route: 048
     Dates: start: 2007
  3. FLUCONAZOLE [Concomitant]
     Active Substance: FLUCONAZOLE
     Indication: Oesophageal candidiasis
     Route: 048
     Dates: start: 20231114, end: 20231114

REACTIONS (2)
  - Onycholysis [Not Recovered/Not Resolved]
  - Fingerprint loss [Recovered/Resolved]

NARRATIVE: CASE EVENT DATE: 20220901
